FAERS Safety Report 12957924 (Version 2)
Quarter: 2018Q4

REPORT INFORMATION
  Report Type: Spontaneous
  Country: US (occurrence: US)
  Receive Date: 20161118
  Receipt Date: 20181213
  Transmission Date: 20190204
  Serious: No
  Sender: FDA-Public Use
  Company Number: US-LUNDBECK-DKLU2021602

PATIENT
  Sex: Female

DRUGS (1)
  1. ONFI [Suspect]
     Active Substance: CLOBAZAM
     Indication: GENERALISED TONIC-CLONIC SEIZURE
     Route: 048
     Dates: start: 201609

REACTIONS (4)
  - Staring [Unknown]
  - Headache [Unknown]
  - Product dose omission [Unknown]
  - Initial insomnia [Unknown]
